FAERS Safety Report 7439243-1 (Version None)
Quarter: 2011Q2

REPORT INFORMATION
  Report Type: 
  Country: None (occurrence: None)
  Receive Date: 20110427
  Receipt Date: 20110418
  Transmission Date: 20111010
  Serious: Yes (Other)
  Sender: FDA-Public Use
  Company Number: GB-ELI_LILLY_AND_COMPANY-GB201104005250

PATIENT
  Sex: Male

DRUGS (1)
  1. ZYPREXA [Suspect]
     Dosage: 20 MG, UNK
     Dates: end: 20101117

REACTIONS (16)
  - SKIN HAEMORRHAGE [None]
  - INFLAMMATION [None]
  - HYPERSOMNIA [None]
  - ERYTHEMA [None]
  - SKIN DISCOLOURATION [None]
  - FAECALOMA [None]
  - SPEECH DISORDER [None]
  - THINKING ABNORMAL [None]
  - FLUID RETENTION [None]
  - PRURITUS GENERALISED [None]
  - BLOOD PRESSURE INCREASED [None]
  - FEELING COLD [None]
  - OEDEMA [None]
  - WEIGHT INCREASED [None]
  - VISION BLURRED [None]
  - LIBIDO DECREASED [None]
